FAERS Safety Report 6793580-2 (Version None)
Quarter: 2010Q2

REPORT INFORMATION
  Report Type: 
  Country: None (occurrence: None)
  Receive Date: 20100624
  Receipt Date: 20090121
  Transmission Date: 20101027
  Serious: Yes (Other)
  Sender: FDA-Public Use
  Company Number: US-PFIZER INC-2008157177

PATIENT
  Sex: Male

DRUGS (1)
  1. GENOTROPIN [Suspect]
     Indication: SMALL FOR DATES BABY
     Dosage: 2.2 MG, 1X/DAY
     Route: 058
     Dates: start: 20040301, end: 20081212

REACTIONS (2)
  - HEADACHE [None]
  - PAPILLOEDEMA [None]
